FAERS Safety Report 7077785-1 (Version None)
Quarter: 2010Q4

REPORT INFORMATION
  Report Type: 
  Country: None (occurrence: None)
  Receive Date: 20101101
  Receipt Date: 20101019
  Transmission Date: 20110411
  Serious: Yes (Other)
  Sender: FDA-Public Use
  Company Number: PHHY2010BR71272

PATIENT
  Age: 66 Year
  Sex: Female

DRUGS (1)
  1. DIOVAN AMLO [Suspect]

REACTIONS (4)
  - BLOOD PRESSURE DECREASED [None]
  - DIZZINESS [None]
  - UTERINE POLYP [None]
  - UTERINE POLYPECTOMY [None]
